FAERS Safety Report 8857412 (Version 2)
Quarter: 2012Q4

REPORT INFORMATION
  Report Type: 
  Country: US (occurrence: US)
  Receive Date: 20121024
  Receipt Date: 20121103
  Transmission Date: 20130627
  Serious: Yes (Hospitalization, Other)
  Sender: FDA-Public Use
  Company Number: US-009507513-1104USA01834

PATIENT
  Age: 80 Year
  Sex: Female

DRUGS (3)
  1. DECADRON [Suspect]
     Indication: MULTIPLE MYELOMA
     Dosage: 40 mg, QW
     Route: 042
     Dates: start: 20110117
  2. ZOMETA [Concomitant]
     Indication: MULTIPLE MYELOMA
     Dosage: 4 mg, QM
     Route: 042
     Dates: start: 20110120
  3. VELCADE [Concomitant]
     Indication: MULTIPLE MYELOMA
     Dosage: d1, 4, 8, 11 q 21 d cycle
     Route: 042
     Dates: start: 20110117

REACTIONS (8)
  - Acute myocardial infarction [Recovered/Resolved]
  - Systolic dysfunction [Recovered/Resolved]
  - Pulmonary oedema [Recovered/Resolved]
  - Hypercholesterolaemia [Recovered/Resolved]
  - Urinary tract infection [Recovered/Resolved]
  - Adrenal haemorrhage [Recovered/Resolved]
  - Adrenal mass [Recovered/Resolved]
  - Musculoskeletal chest pain [Recovered/Resolved]
